FAERS Safety Report 19736079 (Version 1)
Quarter: 2021Q3

REPORT INFORMATION
  Report Type: Spontaneous
  Country: US (occurrence: US)
  Receive Date: 20210823
  Receipt Date: 20210823
  Transmission Date: 20211014
  Serious: Yes (Other)
  Sender: FDA-Public Use
  Company Number: US-PFIZER INC-202101058477

PATIENT

DRUGS (1)
  1. XANAX [Suspect]
     Active Substance: ALPRAZOLAM
     Dosage: UNK

REACTIONS (12)
  - Pyrexia [Unknown]
  - Mental disorder [Unknown]
  - Haemorrhage [Unknown]
  - Urinary tract infection [Unknown]
  - Insomnia [Unknown]
  - Hypotension [Unknown]
  - Disease recurrence [Unknown]
  - Condition aggravated [Unknown]
  - Illness [Unknown]
  - Blood urine [Unknown]
  - Withdrawal syndrome [Unknown]
  - Seizure [Unknown]
